FAERS Safety Report 14624228 (Version 2)
Quarter: 2018Q2

REPORT INFORMATION
  Report Type: Spontaneous
  Country: US (occurrence: US)
  Receive Date: 20180312
  Receipt Date: 20180410
  Transmission Date: 20180711
  Serious: Yes (Other)
  Sender: FDA-Public Use
  Company Number: US-ROCHE-2082645

PATIENT
  Age: 72 Year
  Sex: Male
  Weight: 71.28 kg

DRUGS (6)
  1. XELODA [Suspect]
     Active Substance: CAPECITABINE
     Indication: PRODUCT USED FOR UNKNOWN INDICATION
     Route: 042
     Dates: start: 20150425, end: 20160706
  2. XGEVA [Concomitant]
     Active Substance: DENOSUMAB
     Route: 058
  3. FEMARA [Concomitant]
     Active Substance: LETROZOLE
     Indication: BREAST CANCER METASTATIC
  4. IBRANCE [Suspect]
     Active Substance: PALBOCICLIB
     Indication: BREAST CANCER METASTATIC
     Dosage: 1 CAPSULE EVERY MORNING WITH BREAKFAST FOR 21 DAYS AND OFF FOR 7 DAYS
     Route: 048
     Dates: start: 20171021
  5. NEUPOGEN [Concomitant]
     Active Substance: FILGRASTIM
     Route: 065
  6. METFORMIN [Concomitant]
     Active Substance: METFORMIN HYDROCHLORIDE
     Indication: TYPE 2 DIABETES MELLITUS
     Dosage: EVERYDAY WITH BREAKFAST,ONGOING
     Route: 065

REACTIONS (14)
  - Feeding disorder [Unknown]
  - Central nervous system lesion [Unknown]
  - Bone cancer [Unknown]
  - Vomiting [Recovered/Resolved]
  - Subdural haematoma [Unknown]
  - Renal neoplasm [Unknown]
  - Weight increased [Unknown]
  - Diarrhoea [Recovered/Resolved]
  - Fall [Unknown]
  - Pain [Unknown]
  - Alopecia [Not Recovered/Not Resolved]
  - Lung neoplasm [Unknown]
  - Blood count abnormal [Unknown]
  - Hypoaesthesia [Unknown]

NARRATIVE: CASE EVENT DATE: 201710
